FAERS Safety Report 5638369-2 (Version None)
Quarter: 2008Q1

REPORT INFORMATION
  Report Type: 
  Country: None (occurrence: None)
  Receive Date: 20080219
  Receipt Date: 20080206
  Transmission Date: 20080703
  Serious: Yes (Other)
  Sender: FDA-Public Use
  Company Number: 163-21880-08020348

PATIENT
  Age: 65 Year
  Sex: Female
  Weight: 88 kg

DRUGS (3)
  1. REVLIMID [Suspect]
     Indication: MULTIPLE MYELOMA
     Dosage: 15 MG, QD, ORAL, 10 MG, FOR 3 MONTHS, ORAL
     Route: 048
     Dates: start: 20070119, end: 20080123
  2. LEVAQUIN [Concomitant]
  3. IVIG (IMMUNOGLOBULIN) [Concomitant]

REACTIONS (4)
  - BRONCHITIS [None]
  - CLOSTRIDIUM COLITIS [None]
  - DISEASE PROGRESSION [None]
  - HYPERTHYROIDISM [None]
